FAERS Safety Report 4366977-8 (Version None)
Quarter: 2004Q2

REPORT INFORMATION
  Report Type: 
  Country: None (occurrence: None)
  Receive Date: 20040528
  Receipt Date: 20040513
  Transmission Date: 20050107
  Serious: Yes (Other)
  Sender: FDA-Public Use
  Company Number: PHBS2004CA06898

PATIENT
  Age: 55 Year
  Sex: Female

DRUGS (4)
  1. DIOVAN [Suspect]
     Dosage: 80 MG, QD
     Route: 048
     Dates: start: 20020401, end: 20040515
  2. VIOXX [Concomitant]
  3. FOSAMAX [Concomitant]
     Indication: OSTEOPOROSIS
  4. PLAQUENIL [Concomitant]
     Indication: RHEUMATOID ARTHRITIS

REACTIONS (3)
  - MUSCLE CRAMP [None]
  - MUSCLE SPASMS [None]
  - MYALGIA [None]
